FAERS Safety Report 10468434 (Version 2)
Quarter: 2014Q3

REPORT INFORMATION
  Report Type: Spontaneous
  Country: US (occurrence: US)
  Receive Date: 20140922
  Receipt Date: 20140922
  Transmission Date: 20150326
  Serious: No
  Sender: FDA-Public Use
  Company Number: US-ALLERGAN-1404988US

PATIENT
  Age: 66 Year
  Sex: Female

DRUGS (5)
  1. LASTACAFT [Suspect]
     Active Substance: ALCAFTADINE
     Indication: HYPERSENSITIVITY
     Dosage: 2 GTT, UNK
     Route: 047
     Dates: start: 2013
  2. REFRESH CELLUVISC [Concomitant]
     Active Substance: CARBOXYMETHYLCELLULOSE SODIUM
     Indication: DRY EYE
  3. GENTEAL                            /00445101/ [Concomitant]
     Indication: DRY EYE
  4. LASTACAFT [Suspect]
     Active Substance: ALCAFTADINE
     Indication: DRY EYE
  5. RESTASIS [Concomitant]
     Active Substance: CYCLOSPORINE
     Indication: DRY EYE

REACTIONS (5)
  - Eye discharge [Recovered/Resolved]
  - Off label use [Unknown]
  - Swelling face [Recovered/Resolved]
  - Reaction to preservatives [Recovered/Resolved]
  - Eyelid oedema [Recovered/Resolved]

NARRATIVE: CASE EVENT DATE: 201311
